FAERS Safety Report 4646436-5 (Version None)
Quarter: 2005Q2

REPORT INFORMATION
  Report Type: 
  Country: None (occurrence: None)
  Receive Date: 20050426
  Receipt Date: 20050422
  Transmission Date: 20051028
  Serious: Yes (Hospitalization)
  Sender: FDA-Public Use
  Company Number: 05-04-0620

PATIENT
  Age: 49 Year
  Sex: Male

DRUGS (1)
  1. CLOZAPINE [Suspect]
     Indication: SCHIZOPHRENIA
     Dosage: 250-300MG QD ORAL
     Route: 048
     Dates: start: 20040701, end: 20050412

REACTIONS (5)
  - ABDOMINAL DISTENSION [None]
  - APPENDICITIS [None]
  - BOWEL SOUNDS ABNORMAL [None]
  - DELIRIUM [None]
  - INTESTINAL OBSTRUCTION [None]
